FAERS Safety Report 9118889 (Version 1)
Quarter: 2013Q1

REPORT INFORMATION
  Report Type: Spontaneous
  Country: BR (occurrence: BR)
  Receive Date: 20130226
  Receipt Date: 20130226
  Transmission Date: 20140127
  Serious: Yes (Other)
  Sender: FDA-Public Use
  Company Number: PHHY2013BR018084

PATIENT
  Age: 65 Year
  Sex: Female

DRUGS (1)
  1. CLOZAPINE [Suspect]
     Indication: SCHIZOPHRENIA
     Dosage: 400 MG, UNK
     Dates: start: 2011

REACTIONS (6)
  - Catatonia [Recovered/Resolved]
  - Mutism [Recovered/Resolved]
  - Apraxia [Recovered/Resolved]
  - Waxy flexibility [Recovered/Resolved]
  - Negativism [Recovered/Resolved]
  - Drug ineffective [Unknown]
